FAERS Safety Report 6258397-6 (Version None)
Quarter: 2009Q3

REPORT INFORMATION
  Report Type: 
  Country: None (occurrence: None)
  Receive Date: 20090702
  Receipt Date: 20090702
  Transmission Date: 20100115
  Serious: Yes (Hospitalization)
  Sender: FDA-Public Use
  Company Number: None

PATIENT
  Age: 55 Year
  Sex: Female
  Weight: 115 kg

DRUGS (1)
  1. CIPROFLOXACIN [Suspect]
     Indication: INFECTION
     Dosage: 400 MG Q 12 HOURS IV
     Route: 042
     Dates: start: 20090620, end: 20090625

REACTIONS (4)
  - CHEST PAIN [None]
  - NAUSEA [None]
  - RECTAL HAEMORRHAGE [None]
  - VENTRICULAR TACHYCARDIA [None]
